FAERS Safety Report 15893921 (Version 1)
Quarter: 2019Q1

REPORT INFORMATION
  Report Type: Spontaneous
  Country: US (occurrence: US)
  Receive Date: 20190131
  Receipt Date: 20190131
  Transmission Date: 20190417
  Serious: No
  Sender: FDA-Public Use
  Company Number: US-ELI_LILLY_AND_COMPANY-US201901012217

PATIENT
  Sex: Female

DRUGS (5)
  1. HUMALOG [Suspect]
     Active Substance: INSULIN LISPRO
     Indication: TYPE 2 DIABETES MELLITUS
     Dosage: 5 U, PRN (WITH MEALS)
     Route: 058
     Dates: start: 2018
  2. HUMALOG [Suspect]
     Active Substance: INSULIN LISPRO
     Dosage: 8 U, PRN (WITH MEALS)
     Route: 058
  3. BASAGLAR [Suspect]
     Active Substance: INSULIN GLARGINE
     Dosage: 45 U, DAILY
     Route: 058
  4. HUMALOG [Suspect]
     Active Substance: INSULIN LISPRO
     Dosage: 8 U, PRN (WITH MEALS)
     Route: 058
  5. BASAGLAR [Suspect]
     Active Substance: INSULIN GLARGINE
     Indication: TYPE 2 DIABETES MELLITUS
     Dosage: 35 U, DAILY
     Route: 058
     Dates: start: 2017

REACTIONS (2)
  - Diabetic retinopathy [Not Recovered/Not Resolved]
  - Glycosylated haemoglobin increased [Recovering/Resolving]
